FAERS Safety Report 5777413-9 (Version None)
Quarter: 2008Q2

REPORT INFORMATION
  Report Type: 
  Country: None (occurrence: None)
  Receive Date: 20080616
  Receipt Date: 20080512
  Transmission Date: 20081010
  Serious: No
  Sender: FDA-Public Use
  Company Number: ADE# 08-066

PATIENT
  Age: 61 Year
  Sex: Male
  Weight: 81.6475 kg

DRUGS (1)
  1. METOPROLOL TARTRATE [Suspect]
     Indication: ATRIAL FIBRILLATION
     Dosage: 1 TABLET 2XDAILY
     Dates: start: 20080423, end: 20080501

REACTIONS (2)
  - DRUG INEFFECTIVE [None]
  - PHARMACEUTICAL PRODUCT COMPLAINT [None]
